FAERS Safety Report 4274960-6 (Version None)
Quarter: 2004Q1

REPORT INFORMATION
  Report Type: 
  Country: None (occurrence: None)
  Receive Date: 20040120
  Receipt Date: 20040108
  Transmission Date: 20041129
  Serious: Yes (Other)
  Sender: FDA-Public Use
  Company Number: 04-01-00084

PATIENT
  Age: 84 Year
  Sex: Male

DRUGS (3)
  1. TRAMADOL HCL [Suspect]
     Indication: POST PROCEDURAL PAIN
     Dosage: 50 MG INTRAVENOUS
     Route: 042
     Dates: start: 20031212, end: 20031212
  2. RANITIDINE [Concomitant]
  3. FERROUS SULFATE 200 MG [Concomitant]

REACTIONS (2)
  - APHASIA [None]
  - LOSS OF CONSCIOUSNESS [None]
